FAERS Safety Report 7499053-6 (Version None)
Quarter: 2011Q2

REPORT INFORMATION
  Report Type: 
  Country: None (occurrence: None)
  Receive Date: 20110524
  Receipt Date: 20110329
  Transmission Date: 20111010
  Serious: Yes (Other)
  Sender: FDA-Public Use
  Company Number: US-BAYER-2011-038687

PATIENT
  Age: 32 Year
  Sex: Female

DRUGS (1)
  1. MIRENA [Suspect]
     Dosage: 20 MCG/24HR, CONT
     Dates: start: 20100401, end: 20110324

REACTIONS (4)
  - UTERINE PERFORATION [None]
  - AMENORRHOEA [None]
  - BACK PAIN [None]
  - ABDOMINAL PAIN [None]
